FAERS Safety Report 5627150-6 (Version None)
Quarter: 2008Q1

REPORT INFORMATION
  Report Type: 
  Country: None (occurrence: None)
  Receive Date: 20080212
  Receipt Date: 20080212
  Transmission Date: 20080703
  Serious: Yes (Hospitalization)
  Sender: FDA-Public Use
  Company Number: None

PATIENT

DRUGS (2)
  1. METOLAZONE [Suspect]
     Indication: RENAL DISORDER
     Dosage: 5MG BID PO
     Route: 048
     Dates: start: 20061026, end: 20080129
  2. BUMETANIDE [Suspect]
     Indication: RENAL DISORDER
     Dosage: 1MG BID PO WAS ON OTHER DOSES PRIOR
     Route: 048
     Dates: start: 20080125, end: 20080129

REACTIONS (3)
  - DEHYDRATION [None]
  - NAUSEA [None]
  - VOMITING [None]
